FAERS Safety Report 6346993-7 (Version None)
Quarter: 2009Q3

REPORT INFORMATION
  Report Type: 
  Country: None (occurrence: None)
  Receive Date: 20090908
  Receipt Date: 20090908
  Transmission Date: 20100115
  Serious: Yes (Disabling, Other)
  Sender: FDA-Public Use
  Company Number: None

PATIENT
  Age: 19 Year
  Sex: Female
  Weight: 81.6475 kg

DRUGS (1)
  1. YAZ [Suspect]
     Indication: CONTRACEPTION
     Dates: start: 20080901, end: 20090101

REACTIONS (5)
  - ANXIETY [None]
  - INCREASED APPETITE [None]
  - MENORRHAGIA [None]
  - PANIC ATTACK [None]
  - WEIGHT INCREASED [None]
